FAERS Safety Report 18713632 (Version 1)
Quarter: 2021Q1

REPORT INFORMATION
  Report Type: Spontaneous
  Country: US (occurrence: US)
  Receive Date: 20210107
  Receipt Date: 20210107
  Transmission Date: 20210419
  Serious: Yes (Death)
  Sender: FDA-Public Use
  Company Number: US-ALVOGEN-2021-ALVOGEN-116009

PATIENT
  Age: 42 Year
  Sex: Male

DRUGS (3)
  1. TRAZODONE [Suspect]
     Active Substance: TRAZODONE HYDROCHLORIDE
     Indication: DRUG ABUSE
     Dosage: ROUTE OF ADMINISTRATION: INGST+ UNKNOWN
  2. ALCOHOL. [Suspect]
     Active Substance: ALCOHOL
     Indication: DRUG ABUSE
     Dosage: ROUTE OF ADMINISTRATION: INGST+ UNKNOWN
  3. GABAPENTIN. [Suspect]
     Active Substance: GABAPENTIN
     Indication: DRUG ABUSE
     Dosage: ROUTE OF ADMINISTRATION: INGST+ UNKNOWN

REACTIONS (1)
  - Drug abuse [Fatal]
